FAERS Safety Report 9165443 (Version 2)
Quarter: 2013Q3

REPORT INFORMATION
  Report Type: Report from Study
  Country: AU (occurrence: AU)
  Receive Date: 20130315
  Receipt Date: 20130801
  Transmission Date: 20140515
  Serious: Yes (Other)
  Sender: FDA-Public Use
  Company Number: PHHY2012AU102379

PATIENT
  Sex: Female
  Weight: 50 kg

DRUGS (5)
  1. ACLASTA [Suspect]
     Dosage: UNK UKN, UNK
     Route: 042
     Dates: start: 20100812
  2. ACLASTA [Suspect]
     Dosage: UNK UKN, UNK
     Route: 042
     Dates: start: 20111014
  3. CALCIUM + VITAMIN D                /01483701/ [Concomitant]
     Indication: OSTEOPOROSIS
     Dosage: UNK UKN, UNK
     Route: 048
  4. PANADOC [Concomitant]
     Indication: DRY EYE
     Dosage: UNK UKN, UNK
  5. NEXIUM 1-2-3 [Concomitant]
     Indication: DRY EYE
     Dosage: UNK UKN, UNK

REACTIONS (4)
  - Tendon rupture [Unknown]
  - Tendonitis [Recovered/Resolved]
  - Joint effusion [Recovered/Resolved]
  - Arthralgia [Unknown]
